FAERS Safety Report 9140356 (Version 1)
Quarter: 2013Q1

REPORT INFORMATION
  Report Type: Spontaneous
  Country: GB (occurrence: US)
  Receive Date: 20130305
  Receipt Date: 20130305
  Transmission Date: 20140127
  Serious: Yes (Life-Threatening, Hospitalization, Other)
  Sender: FDA-Public Use
  Company Number: US-PFIZER INC-2013073318

PATIENT
  Age: 2 Year
  Sex: Male

DRUGS (1)
  1. DILANTIN [Suspect]
     Dosage: UNK
     Route: 048
     Dates: start: 195708

REACTIONS (12)
  - Accidental exposure to product by child [Recovered/Resolved]
  - Stupor [Recovered/Resolved]
  - Toxicity to various agents [Recovered/Resolved]
  - Apnoea [Recovered/Resolved]
  - Musculoskeletal stiffness [Recovered/Resolved]
  - Joint hyperextension [Recovered/Resolved]
  - Slow response to stimuli [Recovered/Resolved]
  - Blood pressure decreased [Recovered/Resolved]
  - Opisthotonus [Recovered/Resolved]
  - Convulsion [Recovered/Resolved]
  - Hyponatraemic syndrome [Recovered/Resolved]
  - Pyrexia [Recovered/Resolved]
